FAERS Safety Report 16454529 (Version 1)
Quarter: 2019Q2

REPORT INFORMATION
  Report Type: Spontaneous
  Country: GB (occurrence: GB)
  Receive Date: 20190619
  Receipt Date: 20190619
  Transmission Date: 20190711
  Serious: Yes (Other)
  Sender: FDA-Public Use
  Company Number: GB-NOVOPROD-667148

PATIENT
  Age: 46 Year
  Sex: Female
  Weight: 63.5 kg

DRUGS (2)
  1. ESTRADIOL. [Suspect]
     Active Substance: ESTRADIOL
     Indication: MENOPAUSE
     Dosage: 2 DF QD (2 PUMPS)
     Route: 048
     Dates: start: 20190513
  2. UTROGESTAN [Suspect]
     Active Substance: PROGESTERONE
     Indication: MENOPAUSE
     Dosage: 100 MG, QD
     Route: 048
     Dates: start: 20190513

REACTIONS (3)
  - Headache [Recovered/Resolved]
  - Depressed mood [Not Recovered/Not Resolved]
  - Nausea [Not Recovered/Not Resolved]

NARRATIVE: CASE EVENT DATE: 20190514
